FAERS Safety Report 10083796 (Version 1)
Quarter: 2014Q2

REPORT INFORMATION
  Report Type: Spontaneous
  Country: US (occurrence: None)
  Receive Date: 20140416
  Receipt Date: 20140416
  Transmission Date: 20141212
  Serious: No
  Sender: FDA-Public Use
  Company Number: None

PATIENT
  Sex: Female

DRUGS (1)
  1. NEXAVAR [Suspect]
     Indication: HEPATIC CANCER
     Dosage: TWICE DAILY THREE WEEKS ON 1
     Route: 048
     Dates: start: 20130620, end: 20140415

REACTIONS (2)
  - Hypertension [None]
  - Hyperglycaemia [None]
